FAERS Safety Report 12709914 (Version 4)
Quarter: 2018Q2

REPORT INFORMATION
  Report Type: Spontaneous
  Country: CA (occurrence: CA)
  Receive Date: 20160901
  Receipt Date: 20180525
  Transmission Date: 20180711
  Serious: Yes (Other)
  Sender: FDA-Public Use
  Company Number: CA-ROCHE-1822918

PATIENT
  Age: 51 Year
  Sex: Female

DRUGS (4)
  1. VIRAZOLE [Suspect]
     Active Substance: RIBAVIRIN
     Indication: CHRONIC HEPATITIS C
     Dosage: 400 MG IN MORNING AND 600 MG IN NIGHT
     Route: 048
  2. TRAVOPROST. [Concomitant]
     Active Substance: TRAVOPROST
     Indication: OPEN ANGLE GLAUCOMA
     Route: 061
  3. PEG-INTERFERON ALFA 2A [Suspect]
     Active Substance: PEGINTERFERON ALFA-2A
     Indication: CHRONIC HEPATITIS C
     Route: 042
  4. BOCEPREVIR [Suspect]
     Active Substance: BOCEPREVIR
     Indication: CHRONIC HEPATITIS C
     Dosage: DIVIDED DOSE (400 MG IN THE MORNING AND 600 MG IN THE EVENING)
     Route: 048

REACTIONS (4)
  - Retinal disorder [Recovered/Resolved]
  - Intraocular pressure increased [Recovered/Resolved]
  - Virologic failure [Unknown]
  - Visual field defect [Recovered/Resolved]
